FAERS Safety Report 16483340 (Version 2)
Quarter: 2020Q1

REPORT INFORMATION
  Report Type: Report from Study
  Country: US (occurrence: US)
  Receive Date: 20190627
  Receipt Date: 20200129
  Transmission Date: 20200409
  Serious: No
  Sender: FDA-Public Use
  Company Number: PHEH2019US026853

PATIENT
  Sex: Male

DRUGS (3)
  1. COSENTYX [Suspect]
     Active Substance: SECUKINUMAB
     Dosage: 300 MG, QMO
     Route: 058
  2. COSENTYX [Suspect]
     Active Substance: SECUKINUMAB
     Indication: PRODUCT USED FOR UNKNOWN INDICATION
     Route: 065
  3. COSENTYX [Suspect]
     Active Substance: SECUKINUMAB
     Dosage: UNK (5TH LOADING DOSE)
     Route: 065
     Dates: start: 20190616

REACTIONS (6)
  - Anxiety [Unknown]
  - Condition aggravated [Unknown]
  - Fatigue [Unknown]
  - Pain [Unknown]
  - Dizziness [Unknown]
  - Dyspnoea [Unknown]
